FAERS Safety Report 23088265 (Version 2)
Quarter: 2023Q4

REPORT INFORMATION
  Report Type: Spontaneous
  Country: US (occurrence: None)
  Receive Date: 20231020
  Receipt Date: 20231031
  Transmission Date: 20240110
  Serious: Yes (Hospitalization, Other)
  Sender: FDA-Public Use
  Company Number: US-ACS-20230299

PATIENT
  Age: 5 Year
  Sex: Male

DRUGS (11)
  1. FLUCONAZOLE [Suspect]
     Active Substance: FLUCONAZOLE
     Indication: Corneal infection
     Route: 048
  2. TOBRAMYCIN [Suspect]
     Active Substance: TOBRAMYCIN
     Indication: Corneal infection
     Dosage: EACH 1 DROP EVERY 4 HOURS
     Route: 061
  3. VANCOMYCIN [Suspect]
     Active Substance: VANCOMYCIN
     Indication: Corneal infection
     Dosage: 100 MG/L FOR 10 MINUTES, FLUSH FOR 2.5 MINUTES; THIS WAS REPEATED HOURLY AROUND THE CLOCK ()
     Route: 061
  4. AMPHOTERICIN B [Suspect]
     Active Substance: AMPHOTERICIN B
     Indication: Corneal infection
     Dosage: TOPICAL INFUSIONS: AMPHOTERICIN B 0.1% FOR 15 MINUTES, FLUSH FOR 5 MINUTES. THIS WAS REPEATED HOU...
     Route: 061
  5. AMPHOTERICIN B [Suspect]
     Active Substance: AMPHOTERICIN B
     Indication: Corneal infection
     Route: 061
  6. GENTAMICIN [Suspect]
     Active Substance: GENTAMICIN
     Indication: Corneal infection
     Dosage: 100 MG/L FOR 10 MINUTES, FLUSH FOR 5 MINUTES; THIS WAS REPEATED HOURLY AROUND THE CLOCK ()
     Route: 061
  7. MICONAZOLE [Suspect]
     Active Substance: MICONAZOLE
     Indication: Corneal infection
     Route: 061
  8. VANCOMYCIN [Suspect]
     Active Substance: VANCOMYCIN
     Indication: Corneal infection
     Dosage: ()
     Route: 042
  9. VANCOMYCIN [Suspect]
     Active Substance: VANCOMYCIN
     Indication: Corneal infection
     Route: 061
  10. CEFTAZIDIME [Suspect]
     Active Substance: CEFTAZIDIME
     Indication: Corneal infection
     Dosage: ()
     Route: 042
  11. MICONAZOLE [Suspect]
     Active Substance: MICONAZOLE
     Indication: Corneal infection
     Dosage: 1% FOR 10 MINUTES, FLUSH FOR 2.5 MINUTES; THIS WAS REPEATED HOURLY AROUND THE CLOCK ()
     Route: 061

REACTIONS (2)
  - Infective keratitis [Recovered/Resolved]
  - Off label use [Unknown]
